FAERS Safety Report 9687001 (Version 1)
Quarter: 2013Q4

REPORT INFORMATION
  Report Type: Spontaneous
  Country: FR (occurrence: FR)
  Receive Date: 20131113
  Receipt Date: 20131113
  Transmission Date: 20140711
  Serious: Yes (Hospitalization)
  Sender: FDA-Public Use
  Company Number: FR-ASTRAZENECA-2013SE82275

PATIENT
  Age: 29762 Day
  Sex: Male

DRUGS (13)
  1. CRESTOR [Suspect]
     Indication: DYSLIPIDAEMIA
     Route: 048
  2. CRESTOR [Suspect]
     Indication: DYSLIPIDAEMIA
     Route: 048
     Dates: start: 201308, end: 20130823
  3. ACLASTA [Suspect]
     Indication: OSTEOPOROSIS
     Route: 042
     Dates: start: 20130813, end: 20130813
  4. BISOCE [Concomitant]
  5. KARDEGIC [Concomitant]
  6. TARDYFERON [Concomitant]
  7. TRIATEC [Concomitant]
  8. SPECIAFOLDINE [Concomitant]
  9. GLUCOR [Concomitant]
  10. TEMESTA [Concomitant]
  11. INEXIUM [Concomitant]
  12. OXYCONTIN [Concomitant]
  13. OXYNORMORO [Concomitant]

REACTIONS (2)
  - Renal failure acute [Recovered/Resolved]
  - Cholestasis [Recovered/Resolved]
